FAERS Safety Report 10246313 (Version 2)
Quarter: 2014Q2

REPORT INFORMATION
  Report Type: Spontaneous
  Country: US (occurrence: None)
  Receive Date: 20140617
  Receipt Date: 20140627
  Transmission Date: 20141212
  Serious: Yes (Other)
  Sender: FDA-Public Use
  Company Number: 2014SA076064

PATIENT
  Age: 49 Year
  Sex: Female

DRUGS (17)
  1. CORTIZONE [Suspect]
     Indication: PRODUCT USED FOR UNKNOWN INDICATION
  2. LANTUS [Concomitant]
  3. NOVOLOG [Concomitant]
  4. ATENOLOL [Concomitant]
  5. OXYCONTIN [Concomitant]
  6. RANITIDINE [Concomitant]
  7. TRAMADOL [Concomitant]
  8. ALPHAGAN [Concomitant]
  9. NITRO [Concomitant]
  10. ANTIDEPRESSANTS [Concomitant]
  11. ASPIRIN [Concomitant]
  12. IBUPROFEN [Concomitant]
  13. GOLD [Concomitant]
  14. TITANTIUM DIOXIDE [Concomitant]
  15. SINGULAIR [Concomitant]
  16. GLIPIZIDE [Concomitant]
  17. NEURONTIN [Concomitant]

REACTIONS (2)
  - Muscle spasms [None]
  - Gastric haemorrhage [None]
